FAERS Safety Report 9917897 (Version 2)
Quarter: 2014Q1

REPORT INFORMATION
  Report Type: Spontaneous
  Country: SK (occurrence: SK)
  Receive Date: 20140221
  Receipt Date: 20140328
  Transmission Date: 20141002
  Serious: Yes (Death, Hospitalization)
  Sender: FDA-Public Use
  Company Number: SK-ROCHE-1354124

PATIENT
  Age: 22 Year
  Sex: Male

DRUGS (6)
  1. XOLAIR [Suspect]
     Indication: ASTHMA
     Route: 058
     Dates: start: 20140131
  2. SYMBICORT [Concomitant]
     Route: 065
  3. VENTOLIN [Concomitant]
     Route: 065
  4. NASONEX [Concomitant]
     Route: 065
  5. MONTELUKAST [Concomitant]
     Route: 065
  6. AERIUS [Concomitant]
     Route: 065

REACTIONS (5)
  - Pneumonia [Fatal]
  - Multi-organ disorder [Fatal]
  - Interstitial lung disease [Unknown]
  - Malaise [Unknown]
  - Cough [Unknown]
